FAERS Safety Report 6965135 (Version 3)
Quarter: 2012Q4

REPORT INFORMATION
  Report Type: 
  Country: US (occurrence: US)
  Receive Date: 20060525
  Receipt Date: 20121012
  Transmission Date: 20130627
  Serious: Yes (Other)
  Sender: FDA-Public Use
  Company Number: US-PFIZER INC-2006065541

PATIENT
  Age: 61 Year
  Sex: Female

DRUGS (14)
  1. PROVERA [Suspect]
     Indication: HORMONE REPLACEMENT THERAPY
     Dosage: 5 mg, UNK
     Route: 048
     Dates: start: 199302, end: 199505
  2. PROVERA [Suspect]
     Indication: MENOPAUSAL SYMPTOMS
  3. MEDROXYPROGESTERONE ACETATE [Suspect]
     Indication: HORMONE REPLACEMENT THERAPY
     Dosage: 2.5 to 5mg
     Route: 048
     Dates: start: 199505, end: 200204
  4. MEDROXYPROGESTERONE ACETATE [Suspect]
     Indication: MENOPAUSAL SYMPTOMS
  5. PREMARIN [Suspect]
     Indication: HORMONE REPLACEMENT THERAPY
     Dosage: UNK
     Route: 048
     Dates: start: 199302, end: 200204
  6. PREMARIN [Suspect]
     Indication: MENOPAUSAL SYMPTOMS
  7. CYCRIN [Suspect]
     Indication: HORMONE REPLACEMENT THERAPY
     Dosage: UNK
     Route: 048
     Dates: start: 199902, end: 199910
  8. CYCRIN [Suspect]
     Indication: MENOPAUSAL SYMPTOMS
  9. MEDROXYPROGESTERONE ACETATE [Suspect]
     Indication: HORMONE REPLACEMENT THERAPY
     Dosage: UNK
     Dates: start: 1999, end: 2002
  10. ESTRADERM [Suspect]
     Indication: HORMONE REPLACEMENT THERAPY
     Dosage: 05 mg, UNK
     Route: 065
     Dates: start: 199802, end: 199803
  11. ESTRADERM [Suspect]
     Indication: MENOPAUSAL SYMPTOMS
  12. HYDROCHLOROTHIAZIDE [Concomitant]
     Indication: FLUID RETENTION
     Dosage: UNK
     Dates: start: 2002
  13. CLARITIN-D [Concomitant]
     Indication: MULTIPLE ALLERGIES
     Dosage: UNK
     Dates: start: 1998
  14. ANASTROZOLE [Concomitant]
     Indication: BREAST CANCER
     Dosage: 1 mg, UNK
     Dates: start: 2004

REACTIONS (1)
  - Invasive ductal breast carcinoma [Unknown]
